FAERS Safety Report 24781917 (Version 2)
Quarter: 2025Q1

REPORT INFORMATION
  Report Type: Report from Study
  Country: US (occurrence: US)
  Receive Date: 20241227
  Receipt Date: 20250106
  Transmission Date: 20250408
  Serious: Yes (Hospitalization, Other)
  Sender: TAKEDA
  Company Number: US-TAKEDA-2023TUS112327

PATIENT
  Sex: Female

DRUGS (11)
  1. PONATINIB [Suspect]
     Active Substance: PONATINIB
     Indication: Acute lymphocytic leukaemia
     Dosage: 45 MILLIGRAM, QD
  2. PONATINIB [Suspect]
     Active Substance: PONATINIB
     Dosage: 45 MILLIGRAM, QD
  3. PONATINIB [Suspect]
     Active Substance: PONATINIB
  4. PONATINIB [Suspect]
     Active Substance: PONATINIB
     Dosage: 15 MILLIGRAM, QD
  5. LIPITOR [Concomitant]
     Active Substance: ATORVASTATIN CALCIUM
  6. LEVOTHYROXINE SODIUM [Concomitant]
     Active Substance: LEVOTHYROXINE SODIUM
  7. TIMOLOL [Concomitant]
     Active Substance: TIMOLOL
  8. PEPCID [Concomitant]
     Active Substance: FAMOTIDINE
  9. HYDROCORTISONE [Concomitant]
     Active Substance: HYDROCORTISONE
  10. ALLOPURINOL [Concomitant]
     Active Substance: ALLOPURINOL
  11. METFORMIN HYDROCHLORIDE [Concomitant]
     Active Substance: METFORMIN HYDROCHLORIDE

REACTIONS (7)
  - Colitis [Unknown]
  - Drug hypersensitivity [Unknown]
  - Urticaria [Unknown]
  - Product dose omission issue [Unknown]
  - Off label use [Unknown]
  - Rash [Unknown]
  - Erythema [Unknown]
